FAERS Safety Report 25240018 (Version 2)
Quarter: 2025Q3

REPORT INFORMATION
  Report Type: Report from Study
  Country: JP (occurrence: JP)
  Receive Date: 20250425
  Receipt Date: 20250702
  Transmission Date: 20251021
  Serious: Yes (Death)
  Sender: SHIONOGI
  Company Number: JP-shionogi-202500004416

PATIENT
  Age: 79 Year
  Sex: Male
  Weight: 43 kg

DRUGS (4)
  1. CEFIDEROCOL [Suspect]
     Active Substance: CEFIDEROCOL
     Indication: Pneumonia
     Route: 041
     Dates: start: 20250107, end: 20250113
  2. CEFIDEROCOL [Suspect]
     Active Substance: CEFIDEROCOL
     Dosage: RESUMED
     Route: 041
     Dates: start: 20250203, end: 20250207
  3. PREDONINE [Suspect]
     Active Substance: PREDNISOLONE
     Indication: Microscopic polyangiitis
     Route: 048
  4. AMIKACIN SULFATE [Concomitant]
     Active Substance: AMIKACIN SULFATE
     Indication: Pneumonia
     Route: 065
     Dates: start: 20250102, end: 20250108

REACTIONS (2)
  - Pneumonia [Fatal]
  - Drug resistance [Unknown]

NARRATIVE: CASE EVENT DATE: 20250313
